FAERS Safety Report 9317255 (Version 1)
Quarter: 2013Q2

REPORT INFORMATION
  Report Type: Spontaneous
  Country: US (occurrence: US)
  Receive Date: 20130530
  Receipt Date: 20130530
  Transmission Date: 20140414
  Serious: No
  Sender: FDA-Public Use
  Company Number: US-NOVEN-12US005125

PATIENT
  Age: 14 Year
  Sex: Male

DRUGS (1)
  1. DAYTRANA [Suspect]
     Indication: PRODUCT USED FOR UNKNOWN INDICATION
     Dosage: 30MGX1, 10MGX1 QD
     Route: 062

REACTIONS (5)
  - Tremor [Unknown]
  - Panic attack [Unknown]
  - Decreased appetite [Unknown]
  - Anxiety [Unknown]
  - Drug prescribing error [Unknown]
